FAERS Safety Report 13272356 (Version 1)
Quarter: 2017Q1

REPORT INFORMATION
  Report Type: Spontaneous
  Country: US (occurrence: US)
  Receive Date: 20170225
  Receipt Date: 20170225
  Transmission Date: 20170428
  Serious: Yes (Life-Threatening, Hospitalization, Disabling, Other)
  Sender: FDA-Public Use
  Company Number: None

PATIENT
  Age: 65 Year
  Sex: Male
  Weight: 88.65 kg

DRUGS (2)
  1. MELOXICAM 7.5 MG [Suspect]
     Active Substance: MELOXICAM
     Indication: TINNITUS
     Dosage: ?          QUANTITY:30 TABLET(S);?
     Route: 048
     Dates: start: 20080703
  2. ATENOLOL 25 MG. [Suspect]
     Active Substance: ATENOLOL
     Indication: BLOOD PRESSURE MEASUREMENT
     Dosage: ?          QUANTITY:90 TABLET(S);?
     Route: 048

REACTIONS (1)
  - Cerebrovascular accident [None]

NARRATIVE: CASE EVENT DATE: 20080704
